FAERS Safety Report 20064570 (Version 2)
Quarter: 2021Q4

REPORT INFORMATION
  Report Type: Spontaneous
  Country: GB (occurrence: GB)
  Receive Date: 20211112
  Receipt Date: 20211121
  Transmission Date: 20220303
  Serious: Yes (Hospitalization, Other)
  Sender: FDA-Public Use
  Company Number: GB-009507513-2111GBR001762

PATIENT
  Sex: Male

DRUGS (4)
  1. ISENTRESS [Suspect]
     Active Substance: RALTEGRAVIR POTASSIUM
     Dosage: 800MG DAILY
  2. EMTRICITABINE [Suspect]
     Active Substance: EMTRICITABINE
     Dosage: 200MG DAILY
  3. TENOFOVIR [Suspect]
     Active Substance: TENOFOVIR
     Dosage: 245MG DAILY
  4. INTELENCE [Suspect]
     Active Substance: ETRAVIRINE
     Dosage: 400 MILLIGRAM, QD

REACTIONS (1)
  - Central nervous system infection [Unknown]

NARRATIVE: CASE EVENT DATE: 20210501
